FAERS Safety Report 15543969 (Version 1)
Quarter: 2018Q4

REPORT INFORMATION
  Report Type: Spontaneous
  Country: CA (occurrence: CA)
  Receive Date: 20181023
  Receipt Date: 20181023
  Transmission Date: 20190205
  Serious: Yes (Other)
  Sender: FDA-Public Use
  Company Number: CA-PFIZER INC-2018433141

PATIENT
  Sex: Female

DRUGS (11)
  1. BILASTINE [Concomitant]
     Active Substance: BILASTINE
     Dosage: UNK UNK, QD
     Route: 048
  2. CETIRIZINE HYDROCHLORIDE. [Concomitant]
     Active Substance: CETIRIZINE HYDROCHLORIDE
     Indication: CHRONIC SPONTANEOUS URTICARIA
     Dosage: UNK UNK, QD
     Route: 048
  3. PREDNISONE. [Concomitant]
     Active Substance: PREDNISONE
     Dosage: UNK UNK, QD
     Route: 048
  4. ZENHALE [Concomitant]
     Active Substance: FORMOTEROL FUMARATE\MOMETASONE FUROATE
     Dosage: UNK UNK, QD
     Route: 061
  5. PANTOPRAZOLE [Suspect]
     Active Substance: PANTOPRAZOLE
     Dosage: 1 DF, 2X/DAY
     Route: 048
  6. DUAVIVE [Concomitant]
     Active Substance: BAZEDOXIFENE ACETATE\ESTROGENS, CONJUGATED
     Indication: MENOPAUSE
     Dosage: UNK UNK, QD
     Route: 048
  7. HYDROXYCHLOROQUINE [Concomitant]
     Active Substance: HYDROXYCHLOROQUINE
     Dosage: UNK UNK, QD
     Route: 048
  8. LYRICA [Concomitant]
     Active Substance: PREGABALIN
     Dosage: UNK UNK, QD
     Route: 048
  9. VALSARTAN. [Concomitant]
     Active Substance: VALSARTAN
     Dosage: UNK UNK, QD
     Route: 048
  10. ZOLMITRIPTAN. [Suspect]
     Active Substance: ZOLMITRIPTAN
     Indication: MIGRAINE
     Dosage: 1 DF, 1X/DAY
     Route: 048
  11. CLONAZEPAM. [Suspect]
     Active Substance: CLONAZEPAM
     Dosage: 1 DF, 1X/DAY
     Route: 048

REACTIONS (15)
  - Pruritus [Unknown]
  - Fatigue [Unknown]
  - Headache [Unknown]
  - Lymphocyte count abnormal [Unknown]
  - Alopecia [Unknown]
  - Urticaria [Unknown]
  - Fibromyalgia [Unknown]
  - Rash [Unknown]
  - Dry skin [Unknown]
  - Dyspnoea exertional [Unknown]
  - Monocyte count abnormal [Unknown]
  - Rheumatoid arthritis [Unknown]
  - Rhinorrhoea [Unknown]
  - Urticaria chronic [Unknown]
  - Gastrooesophageal reflux disease [Unknown]
